FAERS Safety Report 16633034 (Version 5)
Quarter: 2019Q3

REPORT INFORMATION
  Report Type: Report from Study
  Country: DE (occurrence: DE)
  Receive Date: 20190725
  Receipt Date: 20190926
  Transmission Date: 20191004
  Serious: Yes (Hospitalization)
  Sender: FDA-Public Use
  Company Number: DE-CELGENEUS-DEU-20190708393

PATIENT
  Age: 69 Year
  Sex: Female
  Weight: 79 kg

DRUGS (9)
  1. PEMBROLIZUMAB. [Suspect]
     Active Substance: PEMBROLIZUMAB
     Indication: BREAST CANCER
     Dosage: 200 MILLIGRAM
     Route: 041
     Dates: start: 20190417
  2. L-TYROXIN [Concomitant]
     Indication: HYPOTHYROIDISM
     Dosage: 50 MICROGRAM
     Route: 048
  3. METOSUCCINAT [Concomitant]
     Indication: HYPERTENSION
     Dosage: 23.75 MILLIGRAM
     Route: 048
  4. AMLODIPINE [Concomitant]
     Active Substance: AMLODIPINE BESYLATE
     Indication: HYPERTENSION
     Dosage: 5 MILLIGRAM
     Route: 048
  5. DEKRISTOL [Concomitant]
     Active Substance: CHOLECALCIFEROL
     Indication: PRODUCT USED FOR UNKNOWN INDICATION
     Route: 048
  6. ABRAXANE [Suspect]
     Active Substance: PACLITAXEL
     Indication: BREAST CANCER
     Dosage: 125 MILLIGRAM/SQ. METER
     Route: 041
     Dates: start: 20190508
  7. CANDESARTAN. [Concomitant]
     Active Substance: CANDESARTAN
     Indication: HYPERTENSION
     Dosage: 8 MILLIGRAM
     Route: 048
  8. CYCLOPHOSPHAMIDE. [Suspect]
     Active Substance: CYCLOPHOSPHAMIDE
     Indication: BREAST CANCER
     Dosage: 28.5714 MILLIGRAM/SQ. METER
     Route: 041
     Dates: start: 20190807
  9. EPIRUBICIN [Suspect]
     Active Substance: EPIRUBICIN
     Indication: BREAST CANCER
     Dosage: 4.2857 MILLIGRAM/SQ. METER
     Route: 041
     Dates: start: 20190807

REACTIONS (2)
  - Erysipelas [Recovered/Resolved]
  - Neuritis cranial [Recovered/Resolved]

NARRATIVE: CASE EVENT DATE: 20190721
